FAERS Safety Report 8582867-9 (Version None)
Quarter: 2012Q3

REPORT INFORMATION
  Report Type: 
  Country: None (occurrence: None)
  Receive Date: 20120809
  Receipt Date: 20120806
  Transmission Date: 20120928
  Serious: Yes (Hospitalization)
  Sender: FDA-Public Use
  Company Number: AU-PFIZER INC-2012189523

PATIENT
  Age: 76 Year
  Sex: Female

DRUGS (4)
  1. CELEBREX [Suspect]
     Dosage: 200 MG, UNK
  2. CITRACAL [Concomitant]
  3. FOSAMAX [Concomitant]
  4. OLMESARTAN MEDOXOMIL [Concomitant]

REACTIONS (7)
  - DYSPHONIA [None]
  - CHEST DISCOMFORT [None]
  - OEDEMA PERIPHERAL [None]
  - PRURITUS [None]
  - DRUG HYPERSENSITIVITY [None]
  - FATIGUE [None]
  - RASH [None]
